FAERS Safety Report 5816362-4 (Version None)
Quarter: 2008Q3

REPORT INFORMATION
  Report Type: 
  Country: None (occurrence: None)
  Receive Date: 20080721
  Receipt Date: 20080305
  Transmission Date: 20090109
  Serious: No
  Sender: FDA-Public Use
  Company Number: US-BAUSCH-2008BL000973

PATIENT
  Age: 74 Year
  Sex: Female
  Weight: 60 kg

DRUGS (3)
  1. OPCON-A [Suspect]
     Indication: EYE PRURITUS
     Route: 047
     Dates: start: 20080304, end: 20080304
  2. NORVASC [Concomitant]
     Indication: HYPERTENSION
  3. IMURAN [Concomitant]
     Indication: COLITIS ULCERATIVE

REACTIONS (1)
  - DRUG INEFFECTIVE [None]
